FAERS Safety Report 25253547 (Version 2)
Quarter: 2025Q2

REPORT INFORMATION
  Report Type: Spontaneous
  Country: CN (occurrence: CN)
  Receive Date: 20250430
  Receipt Date: 20250502
  Transmission Date: 20250717
  Serious: Yes (Other)
  Sender: Kenvue
  Company Number: CN-KENVUE-20250407780

PATIENT

DRUGS (2)
  1. IBUPROFEN [Suspect]
     Active Substance: IBUPROFEN
     Indication: Patent ductus arteriosus
     Route: 048
  2. IBUPROFEN [Suspect]
     Active Substance: IBUPROFEN
     Route: 048

REACTIONS (7)
  - Off label use [Unknown]
  - Intraventricular haemorrhage [Unknown]
  - Gastrointestinal haemorrhage [Unknown]
  - Renal impairment [Unknown]
  - Blood bilirubin increased [Unknown]
  - Therapeutic response unexpected [Unknown]
  - Hepatic function abnormal [Unknown]
